FAERS Safety Report 4612295-X (Version None)
Quarter: 2005Q1

REPORT INFORMATION
  Report Type: 
  Country: None (occurrence: None)
  Receive Date: 20050308
  Receipt Date: 20041202
  Transmission Date: 20050727
  Serious: No
  Sender: FDA-Public Use
  Company Number: 2004UW25227

PATIENT
  Sex: Male

DRUGS (1)
  1. CRESTOR [Suspect]

REACTIONS (1)
  - BLOOD CREATININE INCREASED [None]
